FAERS Safety Report 12897406 (Version 2)
Quarter: 2016Q4

REPORT INFORMATION
  Report Type: Spontaneous
  Country: US (occurrence: US)
  Receive Date: 20161031
  Receipt Date: 20161207
  Transmission Date: 20170207
  Serious: No
  Sender: FDA-Public Use
  Company Number: US-JNJFOC-20160913270

PATIENT
  Age: 51 Year
  Sex: Female

DRUGS (1)
  1. SIMPONI [Suspect]
     Active Substance: GOLIMUMAB
     Indication: PRODUCT USED FOR UNKNOWN INDICATION
     Route: 058

REACTIONS (6)
  - Drug dose omission [Unknown]
  - Pain [Unknown]
  - Nasopharyngitis [Unknown]
  - Drug intolerance [Unknown]
  - Decreased immune responsiveness [Unknown]
  - Asthenia [Unknown]

NARRATIVE: CASE EVENT DATE: 20160818
